FAERS Safety Report 23972023 (Version 1)
Quarter: 2024Q2

REPORT INFORMATION
  Report Type: Spontaneous
  Country: CN (occurrence: None)
  Receive Date: 20240613
  Receipt Date: 20240613
  Transmission Date: 20240716
  Serious: Yes (Disabling, Other)
  Sender: FDA-Public Use
  Company Number: 2024A133704

PATIENT
  Age: 26707 Day
  Sex: Male
  Weight: 59 kg

DRUGS (1)
  1. TICAGRELOR [Suspect]
     Active Substance: TICAGRELOR
     Indication: Arterial stenosis
     Route: 048
     Dates: start: 20240327, end: 20240401

REACTIONS (4)
  - Dysarthria [Unknown]
  - Gastrointestinal haemorrhage [Recovering/Resolving]
  - Hypoaesthesia [Unknown]
  - Muscular weakness [Unknown]

NARRATIVE: CASE EVENT DATE: 20240401
